FAERS Safety Report 8446045-6 (Version None)
Quarter: 2012Q2

REPORT INFORMATION
  Report Type: 
  Country: None (occurrence: None)
  Receive Date: 20120618
  Receipt Date: 20120604
  Transmission Date: 20120825
  Serious: Yes (Hospitalization)
  Sender: FDA-Public Use
  Company Number: ES-TEVA-2011005959

PATIENT
  Sex: Male
  Weight: 85.6 kg

DRUGS (32)
  1. MELPHALAN HYDROCHLORIDE [Suspect]
     Indication: NON-HODGKIN'S LYMPHOMA
  2. CEFEPIME [Concomitant]
     Dates: start: 20111107, end: 20111119
  3. FILGRASTIM [Concomitant]
     Dates: start: 20111121, end: 20111126
  4. NISTATIN [Concomitant]
     Dates: start: 20111102, end: 20111109
  5. POTASSIUM CHLORIDE [Concomitant]
     Dates: start: 20111110, end: 20111113
  6. POTASSIUM CHLORIDE [Concomitant]
     Dates: start: 20111102, end: 20111106
  7. BENDAMUSTINE HYDROCHLORIDE [Suspect]
     Indication: NON-HODGKIN'S LYMPHOMA
     Dosage: 200 MG/M2;
     Route: 042
     Dates: start: 20111103
  8. LINEZOLID [Concomitant]
     Dates: start: 20111119, end: 20111121
  9. METOCLOPRAMIDE [Concomitant]
     Dates: start: 20111109, end: 20111120
  10. OMEPRAZOLE [Concomitant]
     Dates: start: 20111102, end: 20111120
  11. ALPRAZOLAM [Concomitant]
     Dates: start: 20111102, end: 20111120
  12. DEXCHLORPHENIRAMINE MALEATE [Concomitant]
     Dates: start: 20111116, end: 20111118
  13. LOPERAMIDE [Concomitant]
     Dates: start: 20111113, end: 20111120
  14. TEICOPLANIN [Concomitant]
     Dates: start: 20111118, end: 20111119
  15. TRAMADOL HCL [Concomitant]
     Dates: start: 20111111, end: 20111120
  16. CYTARABINE [Suspect]
     Indication: NON-HODGKIN'S LYMPHOMA
  17. BETAMETASONA [Concomitant]
     Dates: start: 20111114, end: 20111120
  18. DIAZEPAM [Concomitant]
     Dates: start: 20111104, end: 20111120
  19. FUROSEMIDE [Concomitant]
     Dates: start: 20111116, end: 20111119
  20. MEROPENEM [Concomitant]
     Dosage: 300 MILLIGRAM;
     Dates: start: 20111120, end: 20111127
  21. POTASSIUM CHLORIDE [Concomitant]
     Dates: start: 20111102, end: 20111106
  22. POTASSIUM CHLORIDE [Concomitant]
     Dates: start: 20111125, end: 20111127
  23. VITAMIN K TAB [Concomitant]
     Dates: start: 20111119
  24. ACETAMINOPHEN [Concomitant]
     Dates: start: 20111107, end: 20111120
  25. POTASSIUM CHLORIDE [Concomitant]
     Dates: start: 20111107, end: 20111108
  26. ACYCLOVIR [Concomitant]
     Dates: start: 20111120, end: 20111210
  27. BUTYLSCOPOLAMINIUMBROMID [Concomitant]
     Dates: start: 20111111, end: 20111120
  28. FLUCONAZOLE [Concomitant]
     Dates: start: 20111102, end: 20111120
  29. ONDANSETRON [Concomitant]
     Dates: start: 20111112, end: 20111120
  30. ETOPOSIDE [Suspect]
     Indication: NON-HODGKIN'S LYMPHOMA
  31. ALLOPURINOL [Concomitant]
     Dates: start: 20111102, end: 20111121
  32. PYRIDOXINE HCL [Concomitant]
     Dates: start: 20111119, end: 20111120

REACTIONS (5)
  - ANURIA [None]
  - PYREXIA [None]
  - SEPSIS [None]
  - TACHYCARDIA [None]
  - HYPOTENSION [None]
